FAERS Safety Report 6945769-7 (Version None)
Quarter: 2010Q3

REPORT INFORMATION
  Report Type: 
  Country: None (occurrence: None)
  Receive Date: 20100827
  Receipt Date: 20100819
  Transmission Date: 20110219
  Serious: Yes (Death)
  Sender: FDA-Public Use
  Company Number: B0651065A

PATIENT
  Age: 52 Year
  Sex: Female
  Weight: 67 kg

DRUGS (1)
  1. TOPOTECAN [Suspect]
     Indication: SMALL CELL CARCINOMA
     Dosage: 9.5MGM2 PER DAY
     Route: 048
     Dates: start: 20100316, end: 20100320

REACTIONS (2)
  - NEUTROPENIC SEPSIS [None]
  - PNEUMONIA [None]
